FAERS Safety Report 7570247-4 (Version None)
Quarter: 2011Q2

REPORT INFORMATION
  Report Type: 
  Country: None (occurrence: None)
  Receive Date: 20110622
  Receipt Date: 20110622
  Transmission Date: 20111010
  Serious: Yes (Other)
  Sender: FDA-Public Use
  Company Number: None

PATIENT
  Age: 61 Year
  Sex: Female
  Weight: 112.3 kg

DRUGS (1)
  1. DULERA [Suspect]
     Indication: ASTHMA
     Dosage: 2 PUFFS BID INHALED
     Route: 055
     Dates: start: 20110331, end: 20110506

REACTIONS (3)
  - FAMILIAL PERIODIC PARALYSIS [None]
  - MUSCULAR WEAKNESS [None]
  - BLOOD POTASSIUM DECREASED [None]
